FAERS Safety Report 18465191 (Version 2)
Quarter: 2020Q4

REPORT INFORMATION
  Report Type: Report from Study
  Country: CA (occurrence: CA)
  Receive Date: 20201105
  Receipt Date: 20201203
  Transmission Date: 20210114
  Serious: Yes (Other)
  Sender: FDA-Public Use
  Company Number: CA-REGENERON PHARMACEUTICALS, INC.-2020-86676

PATIENT

DRUGS (1)
  1. EYLEA [Suspect]
     Active Substance: AFLIBERCEPT
     Indication: DIABETIC RETINAL OEDEMA
     Dosage: 1 DF, ONCE, UNKNOWN TOTAL NUMBER OF DOSES OF EYLEA
     Route: 031
     Dates: start: 20201008, end: 20201008

REACTIONS (2)
  - Unevaluable event [Unknown]
  - Eye operation [Unknown]

NARRATIVE: CASE EVENT DATE: 20201028
